FAERS Safety Report 15900892 (Version 1)
Quarter: 2019Q1

REPORT INFORMATION
  Report Type: Spontaneous
  Country: US (occurrence: US)
  Receive Date: 20190201
  Receipt Date: 20190201
  Transmission Date: 20190417
  Serious: Yes (Other)
  Sender: FDA-Public Use
  Company Number: US-BECTON DICKINSON-2019BDN00037

PATIENT

DRUGS (3)
  1. CHLORAPREP [Suspect]
     Active Substance: CHLORHEXIDINE GLUCONATE\ISOPROPYL ALCOHOL
     Indication: INFECTION PROPHYLAXIS
     Route: 061
  2. 4 FR SL POWERPICC SOLO CATHETER, FULL TRAY WITH TLS [Suspect]
     Active Substance: DEVICE
  3. CHLORAPREP WITH TINT [Suspect]
     Active Substance: CHLORHEXIDINE GLUCONATE\ISOPROPYL ALCOHOL
     Indication: INFECTION PROPHYLAXIS
     Route: 061

REACTIONS (4)
  - Neuralgia [Unknown]
  - Complication of device insertion [Recovered/Resolved]
  - Ventricular extrasystoles [Recovered/Resolved]
  - Foreign body [Recovered/Resolved]
